FAERS Safety Report 7369473-9 (Version None)
Quarter: 2011Q1

REPORT INFORMATION
  Report Type: 
  Country: None (occurrence: None)
  Receive Date: 20110323
  Receipt Date: 20110308
  Transmission Date: 20110831
  Serious: Yes (Hospitalization)
  Sender: FDA-Public Use
  Company Number: PHHY2011NL19618

PATIENT
  Sex: Female

DRUGS (5)
  1. OXYCONTIN [Concomitant]
     Dosage: 2DD1 10MG
     Dates: end: 20110216
  2. BACLOFEN [Interacting]
     Dosage: 3DD1 10MG
     Route: 048
     Dates: end: 20110216
  3. BACLOFEN [Interacting]
     Dosage: 5 MG 3DD1
     Dates: start: 20110221, end: 20110223
  4. CLOZAPINE [Interacting]
     Dosage: 1DD1 3.125 MG
     Route: 048
     Dates: start: 20110118, end: 20110216
  5. CLOZAPINE [Suspect]
     Indication: PSYCHOTIC DISORDER
     Dosage: 1DD 6.25MG
     Route: 048
     Dates: start: 20101201

REACTIONS (5)
  - MUSCLE SPASMS [None]
  - SOMNOLENCE [None]
  - AGITATION [None]
  - INFECTION [None]
  - DRUG INTERACTION [None]
